FAERS Safety Report 7177451-8 (Version None)
Quarter: 2010Q4

REPORT INFORMATION
  Report Type: 
  Country: None (occurrence: None)
  Receive Date: 20101216
  Receipt Date: 20101216
  Transmission Date: 20110411
  Serious: Yes (Hospitalization)
  Sender: FDA-Public Use
  Company Number: None

PATIENT
  Age: 54 Year
  Sex: Male
  Weight: 59 kg

DRUGS (1)
  1. RISPERIDONE [Suspect]
     Indication: MENTAL STATUS CHANGES
     Dosage: 2 MG AT BEDTIME PO
     Route: 048
     Dates: start: 20100901, end: 20101010

REACTIONS (2)
  - MENTAL STATUS CHANGES [None]
  - TREATMENT NONCOMPLIANCE [None]
